FAERS Safety Report 10768821 (Version 1)
Quarter: 2015Q1

REPORT INFORMATION
  Report Type: Spontaneous
  Country: IT (occurrence: None)
  Receive Date: 20150204
  Receipt Date: 20150204
  Transmission Date: 20150721
  Serious: Yes (Other)
  Sender: FDA-Public Use
  Company Number: IT-2015VAL000064

PATIENT
  Age: 52 Year
  Sex: Male

DRUGS (2)
  1. PHENOBARBITAL (PHENOBARBITAL) [Suspect]
     Active Substance: PHENOBARBITAL
     Indication: EPILEPSY
  2. CARBAMAZEPINE (CARBAMAZEPINE) UNKNOWN [Suspect]
     Active Substance: CARBAMAZEPINE
     Indication: EPILEPSY

REACTIONS (6)
  - Weight decreased [None]
  - Dysphagia [None]
  - Dysphonia [None]
  - Osteomalacia [None]
  - Osteoporosis [None]
  - Myopathy [None]
